FAERS Safety Report 12471633 (Version 1)
Quarter: 2016Q2

REPORT INFORMATION
  Report Type: Spontaneous
  Country: US (occurrence: None)
  Receive Date: 20160615
  Receipt Date: 20160615
  Transmission Date: 20160815
  Serious: Yes (Life-Threatening)
  Sender: FDA-Public Use
  Company Number: None

PATIENT
  Age: 84 Year
  Sex: Male
  Weight: 74.7 kg

DRUGS (1)
  1. FERRLECIT [Suspect]
     Active Substance: SODIUM FERRIC GLUCONATE COMPLEX
     Indication: ANAEMIA OF CHRONIC DISEASE
     Dosage: 500MG ONCE OVER 3 HRWS  IV INFUSION LEFT ANTEBRACHIAL
     Route: 042
     Dates: start: 20160520

REACTIONS (4)
  - Erythema [None]
  - Cardiac arrest [None]
  - Rash [None]
  - Product lot number issue [None]

NARRATIVE: CASE EVENT DATE: 20160520
